FAERS Safety Report 6833876-9 (Version None)
Quarter: 2010Q3

REPORT INFORMATION
  Report Type: 
  Country: None (occurrence: None)
  Receive Date: 20100712
  Receipt Date: 20070404
  Transmission Date: 20110219
  Serious: No
  Sender: FDA-Public Use
  Company Number: US-PFIZER INC-2007028361

PATIENT
  Sex: Female
  Weight: 57.15 kg

DRUGS (14)
  1. CHANTIX [Suspect]
     Indication: SMOKING CESSATION THERAPY
     Dates: start: 20070301, end: 20070403
  2. CRESTOR [Suspect]
     Indication: BLOOD CHOLESTEROL INCREASED
     Dates: start: 20070301
  3. DIAZEPAM [Concomitant]
  4. NEXIUM [Concomitant]
  5. VITAMINS [Concomitant]
  6. MULTI-VITAMINS [Concomitant]
  7. PROMETHAZINE [Concomitant]
     Indication: NAUSEA
     Route: 048
  8. PROMETHAZINE [Concomitant]
     Indication: VOMITING
  9. GARLIC [Concomitant]
     Indication: BLOOD CHOLESTEROL INCREASED
     Dates: end: 20070301
  10. AMBIEN [Concomitant]
     Indication: SLEEP DISORDER
     Dates: end: 20070401
  11. FISH OIL [Concomitant]
     Indication: BLOOD CHOLESTEROL INCREASED
     Dates: end: 20070301
  12. VYTORIN [Concomitant]
     Indication: BLOOD CHOLESTEROL INCREASED
  13. ANTIDEPRESSANTS [Concomitant]
  14. ANTINEOPLASTIC AGENTS [Concomitant]

REACTIONS (14)
  - ABNORMAL DREAMS [None]
  - ANXIETY [None]
  - ASTHENIA [None]
  - FATIGUE [None]
  - FOOD CRAVING [None]
  - HYPERHIDROSIS [None]
  - INSOMNIA [None]
  - MALAISE [None]
  - MIDDLE INSOMNIA [None]
  - NAUSEA [None]
  - PANIC ATTACK [None]
  - PRURITUS GENERALISED [None]
  - SUFFOCATION FEELING [None]
  - VOMITING [None]
